FAERS Safety Report 6552544-4 (Version None)
Quarter: 2010Q1

REPORT INFORMATION
  Report Type: 
  Country: None (occurrence: None)
  Receive Date: 20100121
  Receipt Date: 20100108
  Transmission Date: 20100710
  Serious: Yes (Hospitalization)
  Sender: FDA-Public Use
  Company Number: TRP_06712_2010

PATIENT
  Sex: Male

DRUGS (3)
  1. RIBAPAK (NOT SPECIFIED) [Suspect]
     Indication: HEPATITIS C
     Dosage: 1000 MG, DAILY
     Dates: start: 20090724
  2. PEGASYS [Suspect]
     Indication: HEPATITIS C
     Dosage: 180 ?G 1X/WEEK, 90 ?G 1X/WEEK
     Dates: start: 20090724, end: 20091201
  3. PEGASYS [Suspect]
     Indication: HEPATITIS C
     Dosage: 180 ?G 1X/WEEK, 90 ?G 1X/WEEK
     Dates: start: 20091210

REACTIONS (7)
  - DEHYDRATION [None]
  - FATIGUE [None]
  - MALAISE [None]
  - MYALGIA [None]
  - PAIN IN EXTREMITY [None]
  - SALMONELLOSIS [None]
  - WEIGHT DECREASED [None]
